FAERS Safety Report 5256256-9 (Version None)
Quarter: 2007Q1

REPORT INFORMATION
  Report Type: 
  Country: None (occurrence: None)
  Receive Date: 20070302
  Receipt Date: 20070302
  Transmission Date: 20070707
  Serious: Yes (Hospitalization)
  Sender: FDA-Public Use
  Company Number: None

PATIENT
  Age: 66 Year
  Sex: Male
  Weight: 75 kg

DRUGS (3)
  1. OCTREOTIDE ACETATE [Suspect]
     Indication: HEPATIC NEOPLASM MALIGNANT
     Dosage: 30 MG IM
     Route: 030
     Dates: start: 20061206
  2. OCTREOTIDE ACETATE [Suspect]
     Indication: HEPATIC NEOPLASM MALIGNANT
     Dosage: 30 MG IM
     Route: 030
     Dates: start: 20070103
  3. OCTREOTIDE ACETATE [Suspect]
     Indication: HEPATIC NEOPLASM MALIGNANT
     Dosage: 30 MG IM
     Route: 030
     Dates: start: 20070131

REACTIONS (3)
  - ASCITES [None]
  - DYSPNOEA [None]
  - OEDEMA PERIPHERAL [None]
